FAERS Safety Report 7200794-6 (Version None)
Quarter: 2010Q4

REPORT INFORMATION
  Report Type: 
  Country: None (occurrence: None)
  Receive Date: 20101228
  Receipt Date: 20101122
  Transmission Date: 20110411
  Serious: Yes (Life-Threatening, Hospitalization, Other)
  Sender: FDA-Public Use
  Company Number: US-BAXTER-2008BH002419

PATIENT
  Age: 48 Year
  Sex: Female
  Weight: 54 kg

DRUGS (34)
  1. HEPARIN SODIUM INJECTION [Suspect]
     Indication: ANGIOPLASTY
     Route: 041
     Dates: start: 20071210, end: 20071210
  2. HEPARIN SODIUM INJECTION [Suspect]
     Indication: THROMBOEMBOLECTOMY
     Route: 041
     Dates: start: 20071210, end: 20071210
  3. HEPARIN SODIUM INJECTION [Suspect]
     Route: 041
     Dates: start: 20071212, end: 20071212
  4. HEPARIN SODIUM INJECTION [Suspect]
     Route: 041
     Dates: start: 20071212, end: 20071212
  5. HEPARIN SODIUM INJECTION [Suspect]
     Route: 058
     Dates: start: 20071212, end: 20071201
  6. HEPARIN SODIUM INJECTION [Suspect]
     Route: 058
     Dates: start: 20071212, end: 20071201
  7. HEPARIN SODIUM INJECTION [Suspect]
     Route: 065
     Dates: start: 20071213, end: 20071214
  8. HEPARIN SODIUM INJECTION [Suspect]
     Route: 065
     Dates: start: 20071213, end: 20071214
  9. HEPARIN SODIUM INJECTION [Suspect]
     Route: 065
     Dates: start: 20071213, end: 20071214
  10. HEPARIN SODIUM INJECTION [Suspect]
     Route: 065
     Dates: start: 20071213, end: 20071214
  11. HEPARIN SODIUM INJECTION [Suspect]
     Route: 042
     Dates: start: 20080528, end: 20080528
  12. HEPARIN SODIUM INJECTION [Suspect]
     Route: 042
     Dates: start: 20080528, end: 20080528
  13. HEPARIN SODIUM INJECTION [Suspect]
     Route: 041
     Dates: start: 20071214, end: 20071214
  14. HEPARIN SODIUM INJECTION [Suspect]
     Route: 041
     Dates: start: 20071214, end: 20071214
  15. HEPARIN SODIUM 5,000 UNITS IN DEXTROSE 5% [Suspect]
     Indication: PRODUCT USED FOR UNKNOWN INDICATION
     Route: 042
     Dates: start: 20071201, end: 20071201
  16. HEPARIN SODIUM 5,000 UNITS IN DEXTROSE 5% [Suspect]
     Route: 042
     Dates: start: 20071212, end: 20071212
  17. HEPARIN SODIUM 5,000 UNITS IN DEXTROSE 5% [Suspect]
     Route: 042
     Dates: start: 20071212, end: 20071213
  18. HEPARIN SODIUM 1,000 UNITS AND SODIUM CHLORIDE 0.9% [Suspect]
     Indication: PRODUCT USED FOR UNKNOWN INDICATION
     Route: 042
     Dates: start: 20071201, end: 20071201
  19. TORADOL [Concomitant]
     Indication: PAIN
     Route: 042
     Dates: start: 20071210, end: 20071215
  20. ASPIRIN [Concomitant]
     Indication: PRODUCT USED FOR UNKNOWN INDICATION
     Route: 065
  21. MORPHINE [Concomitant]
     Indication: PRODUCT USED FOR UNKNOWN INDICATION
     Route: 042
  22. VICODIN [Concomitant]
     Indication: PRODUCT USED FOR UNKNOWN INDICATION
     Route: 048
  23. ZOFRAN [Concomitant]
     Indication: NAUSEA
     Route: 042
  24. LIPITOR [Concomitant]
     Indication: PRODUCT USED FOR UNKNOWN INDICATION
     Route: 048
  25. DILAUDID [Concomitant]
     Indication: PRODUCT USED FOR UNKNOWN INDICATION
     Route: 042
  26. PROCARDIA XL [Concomitant]
     Indication: PRODUCT USED FOR UNKNOWN INDICATION
     Route: 065
  27. PERCOCET [Concomitant]
     Indication: PRODUCT USED FOR UNKNOWN INDICATION
     Route: 065
  28. DIPYRIDAMOLE [Concomitant]
     Indication: PRODUCT USED FOR UNKNOWN INDICATION
     Route: 065
  29. IBUPROFEN [Concomitant]
     Indication: PRODUCT USED FOR UNKNOWN INDICATION
     Route: 048
  30. ARIXTRA [Concomitant]
     Indication: ANTICOAGULANT THERAPY
     Route: 058
  31. WARFARIN [Concomitant]
     Indication: PRODUCT USED FOR UNKNOWN INDICATION
     Route: 065
  32. LOPRESSOR [Concomitant]
     Indication: PRODUCT USED FOR UNKNOWN INDICATION
     Route: 048
  33. SERAX [Concomitant]
     Indication: PRODUCT USED FOR UNKNOWN INDICATION
     Route: 048
  34. MAGNESIUM OXIDE [Concomitant]
     Indication: PRODUCT USED FOR UNKNOWN INDICATION
     Route: 065

REACTIONS (25)
  - ACUTE RESPIRATORY DISTRESS SYNDROME [None]
  - ANAEMIA [None]
  - ASPIRATION [None]
  - CELLULITIS [None]
  - DIARRHOEA [None]
  - FEMORAL ARTERIAL STENOSIS [None]
  - GANGRENE [None]
  - HEPARIN-INDUCED THROMBOCYTOPENIA [None]
  - ISCHAEMIC HEPATITIS [None]
  - LYMPHADENOPATHY [None]
  - NAUSEA [None]
  - NEUTROPENIA [None]
  - PAIN IN EXTREMITY [None]
  - PANCYTOPENIA [None]
  - PERIPHERAL ARTERIAL OCCLUSIVE DISEASE [None]
  - PNEUMONIA [None]
  - POSTOPERATIVE WOUND INFECTION [None]
  - PULSE ABSENT [None]
  - PYREXIA [None]
  - RENAL FAILURE ACUTE [None]
  - RESPIRATORY FAILURE [None]
  - SEPSIS [None]
  - SEPTIC SHOCK [None]
  - THROMBOCYTOPENIA [None]
  - VOMITING [None]
